FAERS Safety Report 15351247 (Version 4)
Quarter: 2019Q1

REPORT INFORMATION
  Report Type: Spontaneous
  Country: US (occurrence: US)
  Receive Date: 20180905
  Receipt Date: 20190315
  Transmission Date: 20190417
  Serious: No
  Sender: FDA-Public Use
  Company Number: US-PFIZER INC-2018160619

PATIENT
  Age: 10 Year
  Sex: Female
  Weight: 23.13 kg

DRUGS (3)
  1. GENOTROPIN [Suspect]
     Active Substance: SOMATROPIN
     Indication: FOETAL ALCOHOL SYNDROME
     Dosage: 1.4 MG, DAILY (6 DAYS A WEEK)
     Dates: start: 20180318
  2. GENOTROPIN [Suspect]
     Active Substance: SOMATROPIN
     Indication: GROWTH RETARDATION
     Dosage: 1.0 MG, 6 DAYS PER WEEK
     Dates: start: 201802
  3. GENOTROPIN [Suspect]
     Active Substance: SOMATROPIN
     Dosage: 1.2 MG, 6 DAYS A WEEK
     Dates: start: 20180328

REACTIONS (5)
  - Increased appetite [Unknown]
  - Product use in unapproved indication [Unknown]
  - Product dose omission [Unknown]
  - Pain in extremity [Unknown]
  - Wrong technique in device usage process [Unknown]

NARRATIVE: CASE EVENT DATE: 201802
